FAERS Safety Report 24655874 (Version 1)
Quarter: 2024Q4

REPORT INFORMATION
  Report Type: Spontaneous
  Country: US (occurrence: US)
  Receive Date: 20241124
  Receipt Date: 20241124
  Transmission Date: 20250114
  Serious: No
  Sender: SANOFI AVENTIS
  Company Number: US-SA-2024SA325895

PATIENT
  Age: 43 Year
  Sex: Female

DRUGS (2)
  1. TZIELD [Suspect]
     Active Substance: TEPLIZUMAB-MZWV
     Dosage: 119 UG, QD
     Route: 065
  2. TZIELD [Suspect]
     Active Substance: TEPLIZUMAB-MZWV
     Dosage: 1884.9 UG, QD
     Route: 065

REACTIONS (5)
  - Arthralgia [Unknown]
  - Headache [Recovered/Resolved]
  - Pyrexia [Recovering/Resolving]
  - Peripheral swelling [Recovered/Resolved]
  - Platelet count decreased [Unknown]
